FAERS Safety Report 9425055 (Version 2)
Quarter: 2013Q3

REPORT INFORMATION
  Report Type: Spontaneous
  Country: DE (occurrence: DE)
  Receive Date: 20130729
  Receipt Date: 20130823
  Transmission Date: 20140515
  Serious: Yes (Other)
  Sender: FDA-Public Use
  Company Number: DE-PFIZER INC-2013217831

PATIENT
  Age: 64 Year
  Sex: Male
  Weight: 169 kg

DRUGS (2)
  1. INSPRA [Suspect]
     Indication: HEPATIC CIRRHOSIS
     Dosage: 20 MG, 1X/DAY
     Route: 048
     Dates: start: 20111108
  2. INSPRA [Suspect]
     Indication: ASCITES

REACTIONS (2)
  - Borrelia infection [Unknown]
  - Erythema [Recovered/Resolved]
